FAERS Safety Report 10541179 (Version 2)
Quarter: 2014Q4

REPORT INFORMATION
  Report Type: Spontaneous
  Country: US (occurrence: None)
  Receive Date: 20141010
  Receipt Date: 20141205
  Transmission Date: 20150529
  Serious: No
  Sender: FDA-Public Use
  Company Number: 163-POMAL-14045276

PATIENT
  Age: 61 Year
  Sex: Female
  Weight: 74.8 kg

DRUGS (14)
  1. SIMVASTATIN. [Concomitant]
     Active Substance: SIMVASTATIN
  2. VITAMIN B12 ( CYANOCOBALAMIN) [Concomitant]
  3. GABAPENTIN. [Concomitant]
     Active Substance: GABAPENTIN
  4. LOVENOX ( HEPARIN-FRACTION, SODIUM SALT) [Concomitant]
  5. DULOXETINE [Concomitant]
     Active Substance: DULOXETINE
  6. COENZYME Q10 ( UBIDECARENONE) [Concomitant]
  7. VITAMIN B [Concomitant]
     Active Substance: VITAMIN B
  8. LANSOPRAZOLE. [Concomitant]
     Active Substance: LANSOPRAZOLE
  9. ACYCLOVIR. [Concomitant]
     Active Substance: ACYCLOVIR
  10. DEXAMETHASONE. [Concomitant]
     Active Substance: DEXAMETHASONE
  11. BUPROPION [Concomitant]
     Active Substance: BUPROPION
  12. POMALYST [Suspect]
     Active Substance: POMALIDOMIDE
     Indication: PLASMA CELL MYELOMA
     Dosage: 4 MG, 21 IN 21 D, PO
     Route: 048
     Dates: start: 20131223, end: 20140611
  13. VITAMIN D3 ( COLECALCIFEROL) [Concomitant]
  14. MULTIVITAMINS [Concomitant]
     Active Substance: VITAMINS

REACTIONS (4)
  - No adverse event [None]
  - Drug dose omission [None]
  - Pulmonary toxicity [None]
  - Lung infiltration [None]

NARRATIVE: CASE EVENT DATE: 201404
